FAERS Safety Report 26051131 (Version 1)
Quarter: 2025Q4

REPORT INFORMATION
  Report Type: Spontaneous
  Country: GB (occurrence: GB)
  Receive Date: 20251117
  Receipt Date: 20251117
  Transmission Date: 20260118
  Serious: Yes (Hospitalization, Other)
  Sender: ALKEM
  Company Number: None

PATIENT
  Age: 50 Year
  Sex: Male
  Weight: 102 kg

DRUGS (2)
  1. QUETIAPINE FUMARATE [Suspect]
     Active Substance: QUETIAPINE FUMARATE
     Indication: Schizoaffective disorder
     Dosage: UNK
     Route: 065
  2. QUETIAPINE FUMARATE [Suspect]
     Active Substance: QUETIAPINE FUMARATE
     Dosage: 175 MILLIGRAM (DOSE DECREASED)
     Route: 065

REACTIONS (1)
  - Rebound psychosis [Recovered/Resolved]
